FAERS Safety Report 7372464-5 (Version None)
Quarter: 2011Q1

REPORT INFORMATION
  Report Type: 
  Country: None (occurrence: None)
  Receive Date: 20110324
  Receipt Date: 20110318
  Transmission Date: 20110831
  Serious: Yes (Death, Hospitalization)
  Sender: FDA-Public Use
  Company Number: US-ROCHE-740634

PATIENT
  Sex: Female
  Weight: 43.5 kg

DRUGS (13)
  1. NYSTATIN [Concomitant]
     Dosage: MOUTHWASH
  2. ZOCOR [Concomitant]
  3. CARBOPLATIN [Suspect]
     Indication: NON-SMALL CELL LUNG CANCER STAGE IV
     Dosage: DOSE LEVEL: 6 AUC, FREQUENCY: ON DAY 1 OF EVERY 21 DAY CYCLE
     Route: 042
     Dates: start: 20100903, end: 20100924
  4. FOLIC ACID [Concomitant]
     Dates: start: 20100824
  5. DEXAMETHASONE [Concomitant]
  6. PREMARIN [Concomitant]
  7. ADVAIR DISKUS 100/50 [Concomitant]
     Dosage: INHALER
     Route: 055
  8. BEVACIZUMAB [Suspect]
     Indication: NON-SMALL CELL LUNG CANCER STAGE IV
     Dosage: FREQUENCY: ON DAY 1 OF EVERY 21 DAY CYCLE,
     Route: 042
     Dates: start: 20100903, end: 20100924
  9. PEMETREXED [Suspect]
     Indication: NON-SMALL CELL LUNG CANCER STAGE IV
     Dosage: FREQUENCY: ON DAY 1 OF EVERY 21 DAY CYCLE,
     Route: 042
     Dates: start: 20100903, end: 20100924
  10. ZOLOFT [Concomitant]
  11. MEGACE [Concomitant]
  12. VITAMIN B-12 [Concomitant]
     Dates: start: 20100824
  13. ZOMETA [Concomitant]

REACTIONS (2)
  - DEATH [None]
  - PNEUMOTHORAX [None]
